FAERS Safety Report 5430740-7 (Version None)
Quarter: 2007Q3

REPORT INFORMATION
  Report Type: 
  Country: None (occurrence: None)
  Receive Date: 20070830
  Receipt Date: 20070118
  Transmission Date: 20080115
  Serious: No
  Sender: FDA-Public Use
  Company Number: A0626547A

PATIENT
  Age: 45 Year
  Sex: Female
  Weight: 62.3 kg

DRUGS (1)
  1. WELLBUTRIN XL [Suspect]
     Indication: DRUG USE FOR UNKNOWN INDICATION
     Dosage: 150MG IN THE MORNING
     Route: 048
     Dates: start: 20060901

REACTIONS (5)
  - DIZZINESS [None]
  - HEADACHE [None]
  - HYPOAESTHESIA [None]
  - IRRITABILITY [None]
  - PARAESTHESIA [None]
